FAERS Safety Report 4263832-9 (Version None)
Quarter: 2004Q1

REPORT INFORMATION
  Report Type: 
  Country: None (occurrence: None)
  Receive Date: 20040105
  Receipt Date: 20040105
  Transmission Date: 20041129
  Serious: Yes (Hospitalization)
  Sender: FDA-Public Use
  Company Number: None

PATIENT
  Age: 25 Year
  Weight: 68.0396 kg

DRUGS (2)
  1. WELLBUTRIN XL [Suspect]
     Indication: DEPRESSION
     Dosage: 150 MG BEGAN 12/5/03 INCREASED TO 300 MG 12/11
     Dates: start: 20031205
  2. CLOMIPRAMINE HCL [Concomitant]

REACTIONS (4)
  - CONCUSSION [None]
  - FALL [None]
  - GRAND MAL CONVULSION [None]
  - SKULL FRACTURE [None]
